FAERS Safety Report 23798311 (Version 2)
Quarter: 2024Q2

REPORT INFORMATION
  Report Type: Report from Study
  Country: US (occurrence: None)
  Receive Date: 20240430
  Receipt Date: 20240523
  Transmission Date: 20240716
  Serious: Yes (Other)
  Sender: FDA-Public Use
  Company Number: 2024A098821

PATIENT
  Age: 30983 Day
  Sex: Male

DRUGS (1)
  1. FARXIGA [Suspect]
     Active Substance: DAPAGLIFLOZIN PROPANEDIOL
     Indication: Cardiac failure
     Route: 048

REACTIONS (3)
  - Fungal infection [Unknown]
  - Penis disorder [Recovered/Resolved]
  - Scrotal swelling [Recovered/Resolved]

NARRATIVE: CASE EVENT DATE: 20240416
